FAERS Safety Report 8917823 (Version 1)
Quarter: 2012Q4

REPORT INFORMATION
  Report Type: 
  Country: US (occurrence: US)
  Receive Date: 20121120
  Receipt Date: 20121120
  Transmission Date: 20130627
  Serious: Yes (Other)
  Sender: FDA-Public Use
  Company Number: US-TEVA-370715USA

PATIENT
  Age: 39 Year
  Sex: Female
  Weight: 59.93 kg

DRUGS (2)
  1. PARAGARD 380A [Suspect]
     Indication: CONTRACEPTION
     Route: 015
     Dates: start: 20121005
  2. PRENATAL VITAMINS [Concomitant]

REACTIONS (8)
  - Immune system disorder [Recovered/Resolved]
  - Hypersensitivity [Not Recovered/Not Resolved]
  - Anaphylactic reaction [Recovered/Resolved]
  - Chest expansion decreased [Recovered/Resolved]
  - Dyspnoea [Recovered/Resolved]
  - Feeling hot [Recovered/Resolved]
  - Diarrhoea [Recovered/Resolved]
  - Rhinorrhoea [Not Recovered/Not Resolved]
